FAERS Safety Report 8229053-X (Version None)
Quarter: 2012Q1

REPORT INFORMATION
  Report Type: 
  Country: None (occurrence: None)
  Receive Date: 20120322
  Receipt Date: 20120315
  Transmission Date: 20120608
  Serious: Yes (Death, Hospitalization, Other)
  Sender: FDA-Public Use
  Company Number: JP-MERCK-1202USA01100

PATIENT
  Age: 53 Year
  Sex: Female
  Weight: 49 kg

DRUGS (9)
  1. PEPCID [Suspect]
     Indication: GASTRIC ULCER
     Route: 048
     Dates: start: 20010702, end: 20120224
  2. DEXAMETHASONE SODIUM PHOSPHATE [Concomitant]
     Route: 065
  3. NORVASC [Suspect]
     Indication: HYPERTENSION
     Route: 048
     Dates: start: 20070621, end: 20120224
  4. TAXOL [Concomitant]
     Route: 065
  5. EPZICOM [Concomitant]
     Indication: HIV INFECTION
     Route: 048
     Dates: start: 20100218, end: 20120224
  6. PARAPLATIN AQ [Concomitant]
     Route: 065
  7. RAMELTEON [Concomitant]
     Route: 065
  8. ISENTRESS [Suspect]
     Indication: HIV INFECTION
     Route: 048
     Dates: start: 20110420, end: 20120224
  9. TOPOTECAN [Concomitant]
     Route: 065
     Dates: start: 20111116

REACTIONS (3)
  - PALPITATIONS [None]
  - CERVIX CARCINOMA [None]
  - SINUS TACHYCARDIA [None]
